FAERS Safety Report 24560270 (Version 1)
Quarter: 2024Q4

REPORT INFORMATION
  Report Type: Spontaneous
  Country: CN (occurrence: CN)
  Receive Date: 20241029
  Receipt Date: 20241029
  Transmission Date: 20250115
  Serious: Yes (Other)
  Sender: BAYER HEALTHCARE PHARMACEUTICALS INC.
  Company Number: CN-BAYER-2024A151681

PATIENT
  Age: 24 Year
  Sex: Female
  Weight: 68 kg

DRUGS (1)
  1. YASMIN [Suspect]
     Active Substance: DROSPIRENONE\ETHINYL ESTRADIOL
     Indication: Vaginal haemorrhage
     Dosage: 1 DF, Q8HR
     Route: 048
     Dates: start: 20241007, end: 20241014

REACTIONS (5)
  - Suicidal ideation [Recovering/Resolving]
  - Palpitations [Recovering/Resolving]
  - Anxiety [Recovering/Resolving]
  - Depressed mood [Recovering/Resolving]
  - Off label use [None]

NARRATIVE: CASE EVENT DATE: 20241007
